FAERS Safety Report 15279782 (Version 1)
Quarter: 2018Q3

REPORT INFORMATION
  Report Type: Report from Study
  Country: BE (occurrence: BE)
  Receive Date: 20180815
  Receipt Date: 20180815
  Transmission Date: 20181010
  Serious: Yes (Other)
  Sender: FDA-Public Use
  Company Number: BE-ASTELLAS-2018US017887

PATIENT
  Age: 75 Year
  Sex: Male
  Weight: 102 kg

DRUGS (15)
  1. REMERGON [Concomitant]
     Active Substance: MIRTAZAPINE
     Indication: DECREASED APPETITE
     Route: 065
     Dates: start: 20180221, end: 20180321
  2. REMERGON [Concomitant]
     Active Substance: MIRTAZAPINE
     Route: 065
     Dates: start: 20180321
  3. DEPO?ELIGARD [Concomitant]
     Indication: NEOPLASM PROSTATE
     Route: 065
     Dates: start: 20091222
  4. INEGY [Concomitant]
     Active Substance: EZETIMIBE\SIMVASTATIN
     Indication: HYPERCHOLESTEROLAEMIA
     Dosage: 10/40 MG, UNKNOWN FREQ.
     Route: 065
     Dates: start: 20120925
  5. ISOTEN [Concomitant]
     Indication: ATRIAL FIBRILLATION
     Route: 065
     Dates: start: 20081125
  6. TRADONAL [Concomitant]
     Active Substance: TRAMADOL HYDROCHLORIDE
     Indication: BONE PAIN
     Dosage: UNK UNK, UNKNOWN FREQ.
     Route: 065
     Dates: start: 20171227
  7. LANOXIN [Concomitant]
     Active Substance: DIGOXIN
     Dosage: 0.125 MG, UNKNOWN FREQ. (1/2)
     Route: 065
     Dates: start: 20180227
  8. MOTILIUM [Concomitant]
     Active Substance: DOMPERIDONE
     Indication: NAUSEA
     Dosage: UNK UNK, AS NEEDED
     Route: 065
     Dates: start: 20180221
  9. LANOXIN [Concomitant]
     Active Substance: DIGOXIN
     Indication: CARDIOVASCULAR EVENT PROPHYLAXIS
     Dosage: 0.125 MG, UNKNOWN FREQ.
     Route: 065
     Dates: start: 20180123, end: 20180227
  10. ENZALUTAMIDE [Suspect]
     Active Substance: ENZALUTAMIDE
     Indication: PROSTATE CANCER
     Route: 048
     Dates: start: 20171227, end: 20180411
  11. MARCOUMAR [Concomitant]
     Active Substance: PHENPROCOUMON
     Indication: ATRIAL FIBRILLATION
     Dosage: 1 CAPSULE, UNKNOWN FREQ. (1/2)
     Route: 065
     Dates: start: 20100930
  12. TAMSULOSIN [Concomitant]
     Active Substance: TAMSULOSIN
     Indication: BENIGN PROSTATIC HYPERPLASIA
     Dosage: 0.4 MG, UNKNOWN FREQ.
     Route: 065
     Dates: start: 20110718
  13. TRITACE [Concomitant]
     Active Substance: RAMIPRIL
     Indication: HYPERTENSION
     Route: 065
     Dates: start: 20130410
  14. MARCOUMAR [Concomitant]
     Active Substance: PHENPROCOUMON
     Dosage: 1/2 CAPSULE, UNKNOWN FREQ. (1/2)
     Route: 065
  15. GLUCOPHAGE [Concomitant]
     Active Substance: METFORMIN HYDROCHLORIDE
     Indication: DIABETES MELLITUS
     Dosage: 850 MG X 2
     Route: 065
     Dates: start: 20081112

REACTIONS (2)
  - Gastrointestinal stromal tumour [Unknown]
  - Performance status decreased [Not Recovered/Not Resolved]

NARRATIVE: CASE EVENT DATE: 20180411
